FAERS Safety Report 24940055 (Version 5)
Quarter: 2025Q4

REPORT INFORMATION
  Report Type: Spontaneous
  Country: CA (occurrence: CA)
  Receive Date: 20250207
  Receipt Date: 20251217
  Transmission Date: 20260117
  Serious: Yes (Other)
  Sender: CELLTRION
  Company Number: CA-PFIZER INC-202500022321

PATIENT

DRUGS (10)
  1. INFLIXIMAB [Suspect]
     Active Substance: INFLIXIMAB
     Indication: Crohn^s disease
     Dosage: 457 MILLIGRAM
     Route: 042
  2. INFLIXIMAB [Suspect]
     Active Substance: INFLIXIMAB
     Dosage: 460 MILLIGRAM
     Route: 042
  3. INFLIXIMAB [Suspect]
     Active Substance: INFLIXIMAB
     Dosage: 5 MG/KG
     Route: 042
  4. INFLIXIMAB [Suspect]
     Active Substance: INFLIXIMAB
     Dosage: 465 MILLIGRAM
     Route: 042
  5. INFLECTRA [Suspect]
     Active Substance: INFLIXIMAB-DYYB
     Indication: Crohn^s disease
     Dosage: 5 MG/KG, W0,2,6 THEN EVERY 8 WEEKS
     Route: 042
     Dates: start: 20250114
  6. INFLECTRA [Suspect]
     Active Substance: INFLIXIMAB-DYYB
     Dosage: 460 MG AFTER 2 WEEKS AND 1 DAY (W2) (5 MG/KG, W0,2,6 THEN EVERY 8 WEEKS)
     Route: 042
     Dates: start: 20250129
  7. INFLECTRA [Suspect]
     Active Substance: INFLIXIMAB-DYYB
     Dosage: 465 MG, AFTER 4 WEEKS (WEEK 6) (5 MG/KG, W0,2,6 THEN EVERY 8 WEEKS)
     Route: 042
     Dates: start: 20250226
  8. INFLECTRA [Suspect]
     Active Substance: INFLIXIMAB-DYYB
     Dosage: 457 MG, 8 WEEKS (W 0,2,6 THEN EVERY 8 WEEKS)
     Route: 042
     Dates: start: 20250423
  9. ENTOCORT [Concomitant]
     Active Substance: BUDESONIDE
     Dosage: 1 DF
     Dates: start: 20241028
  10. ENTYVIO [Concomitant]
     Active Substance: VEDOLIZUMAB
     Dosage: 1 DF
     Dates: start: 2022

REACTIONS (3)
  - Condition aggravated [Not Recovered/Not Resolved]
  - Arthralgia [Not Recovered/Not Resolved]
  - Off label use [Not Recovered/Not Resolved]

NARRATIVE: CASE EVENT DATE: 20250101
